FAERS Safety Report 10646082 (Version 1)
Quarter: 2014Q4

REPORT INFORMATION
  Report Type: Spontaneous
  Country: DK (occurrence: None)
  Receive Date: 20141209
  Receipt Date: 20141209
  Transmission Date: 20150529
  Serious: Yes (Life-Threatening)
  Sender: FDA-Public Use
  Company Number: FK201405685

PATIENT
  Age: 69 Year
  Sex: Male

DRUGS (6)
  1. ALFENATIL [Concomitant]
  2. CISATRACURIUM [Concomitant]
     Active Substance: CISATRACURIUM
  3. REMIFENTANIL [Concomitant]
     Active Substance: REMIFENTANIL
  4. THIOPENTAL [Concomitant]
     Active Substance: THIOPENTAL
  5. PROPOFOL (MANUFACTURER UNKNOWN) (PROPOFOL) (PROPOFOL) [Suspect]
     Active Substance: PROPOFOL
     Indication: MAINTENANCE OF ANAESTHESIA
     Route: 042
  6. SUXAMETHONIUM [Concomitant]
     Active Substance: SUCCINYLCHOLINE

REACTIONS (1)
  - Anaphylactic reaction [None]
